FAERS Safety Report 8773204 (Version 1)
Quarter: 2012Q4

REPORT INFORMATION
  Report Type: 
  Country: US (occurrence: US)
  Receive Date: 20120907
  Receipt Date: 20120907
  Transmission Date: 20130627
  Serious: No
  Sender: FDA-Public Use
  Company Number: US-PFIZER INC-2012220456

PATIENT
  Sex: Female

DRUGS (4)
  1. LYRICA [Suspect]
     Indication: POSTOPERATIVE CARE
     Dosage: 300 mg, 3x/day
     Route: 048
  2. LYRICA [Suspect]
     Indication: MYALGIA
     Dosage: UNK
     Route: 048
  3. GABAPENTIN [Suspect]
     Dosage: 300 mg, 3x/day
  4. GABAPENTIN [Suspect]
     Dosage: UNK
     Dates: end: 201208

REACTIONS (4)
  - Off label use [Unknown]
  - Abdominal discomfort [Unknown]
  - Somnolence [Unknown]
  - Drug ineffective [Unknown]
